FAERS Safety Report 6702490-8 (Version None)
Quarter: 2010Q2

REPORT INFORMATION
  Report Type: 
  Country: None (occurrence: None)
  Receive Date: 20100429
  Receipt Date: 20100422
  Transmission Date: 20101027
  Serious: Yes (Hospitalization)
  Sender: FDA-Public Use
  Company Number: B0650384A

PATIENT
  Age: 83 Year
  Sex: Female

DRUGS (10)
  1. AUGMENTIN '125' [Suspect]
     Route: 048
     Dates: start: 20100130, end: 20100204
  2. ALDACTONE [Suspect]
     Indication: HYPERTENSION
     Route: 048
     Dates: start: 20090601, end: 20100204
  3. CITALOPRAM HYDROBROMIDE [Concomitant]
     Indication: DEPRESSION
     Route: 048
     Dates: start: 20090601
  4. PREVENCOR [Concomitant]
     Dosage: 3MG PER DAY
     Route: 048
     Dates: start: 20090601
  5. MICARDIS HCT [Concomitant]
     Indication: HYPERTENSION
     Route: 048
     Dates: start: 20070101
  6. OMEPRAZOLE [Concomitant]
     Indication: PROPHYLAXIS
     Dosage: 20MG PER DAY
     Route: 048
     Dates: start: 20070101
  7. ATENOLOL [Concomitant]
     Indication: HYPERTENSION
     Route: 048
     Dates: start: 20070101
  8. SEGURIL [Concomitant]
     Dosage: 40MG PER DAY
     Route: 048
     Dates: start: 20070101
  9. ASPIRIN [Concomitant]
     Dosage: 100MG PER DAY
     Route: 048
     Dates: start: 20070101
  10. UNIKET RETARD [Concomitant]
     Dosage: 50MG PER DAY
     Route: 048
     Dates: start: 20070101

REACTIONS (2)
  - HYPERKALAEMIA [None]
  - RENAL FAILURE ACUTE [None]
